FAERS Safety Report 20770531 (Version 1)
Quarter: 2022Q2

REPORT INFORMATION
  Report Type: Spontaneous
  Country: US (occurrence: US)
  Receive Date: 20220429
  Receipt Date: 20220429
  Transmission Date: 20220721
  Serious: Yes (Death, Hospitalization, Other)
  Sender: FDA-Public Use
  Company Number: US-ELI_LILLY_AND_COMPANY-US202204012409

PATIENT
  Age: 63 Year
  Sex: Female

DRUGS (3)
  1. TADALAFIL [Suspect]
     Active Substance: TADALAFIL
     Indication: Pulmonary hypertension
     Dosage: 40 MG, DAILY
     Route: 065
     Dates: start: 201901
  2. AMBRISENTAN [Suspect]
     Active Substance: AMBRISENTAN
     Indication: Pulmonary hypertension
     Dosage: 10 MG, DAILY
     Route: 065
     Dates: start: 201901
  3. REMODULIN [Suspect]
     Active Substance: TREPROSTINIL
     Indication: Pulmonary hypertension
     Dosage: UNK, UNKNOWN
     Route: 065
     Dates: start: 20190409

REACTIONS (2)
  - Death [Fatal]
  - Mental status changes [Recovered/Resolved]

NARRATIVE: CASE EVENT DATE: 20220420
